FAERS Safety Report 17290743 (Version 2)
Quarter: 2020Q1

REPORT INFORMATION
  Report Type: Report from Study
  Country: JP (occurrence: JP)
  Receive Date: 20200121
  Receipt Date: 20200306
  Transmission Date: 20200409
  Serious: Yes (Hospitalization, Other)
  Sender: FDA-Public Use
  Company Number: JP-BRISTOL-MYERS SQUIBB COMPANY-BMS-2019-077032

PATIENT
  Age: 35 Year
  Sex: Female
  Weight: 54.4 kg

DRUGS (15)
  1. NIVOLUMAB [Suspect]
     Active Substance: NIVOLUMAB
     Indication: CERVIX CARCINOMA
     Dosage: 240 MILLIGRAM, Q2WK
     Route: 041
     Dates: start: 20180905, end: 20200108
  2. LYRICA [Concomitant]
     Active Substance: PREGABALIN
     Indication: PAIN
     Dosage: 100 MILLIGRAM
     Route: 048
     Dates: start: 20190708
  3. VANCOMYCIN [Concomitant]
     Active Substance: VANCOMYCIN
     Indication: DEVICE RELATED INFECTION
     Dosage: 1 GRAM, Q12H
     Route: 041
     Dates: start: 20190729
  4. NAIXAN [NAPROXEN] [Concomitant]
     Active Substance: NAPROXEN
     Indication: PYREXIA
     Route: 065
  5. SODIUM PHOSPHATE DIBASIC;SODIUM PHOSPHATE MONOBASIC (ANHYDROUS) [Concomitant]
     Indication: ELECTROLYTE SUBSTITUTION THERAPY
     Dosage: 20 MILLILITER, EVERYDAY
     Route: 041
     Dates: start: 20190724
  6. MIYA-BM [Concomitant]
     Active Substance: CLOSTRIDIUM BUTYRICUM SPORES STRAIN M-55
     Indication: PROPHYLAXIS AGAINST DIARRHOEA
     Route: 065
  7. TAKECAB [Concomitant]
     Active Substance: VONOPRAZAN FUMURATE
     Indication: PROPHYLAXIS AGAINST GASTROINTESTINAL ULCER
     Dosage: 20 MILLIGRAM, EVERYDAY
     Route: 048
     Dates: start: 20180905
  8. CALONAL [Concomitant]
     Active Substance: ACETAMINOPHEN
     Indication: PAIN
     Dosage: 1000 MILLIGRAM, Q8H
     Route: 048
  9. GOOFICE [Concomitant]
     Active Substance: ELOBIXIBAT
     Indication: CONSTIPATION
     Dosage: 10 MILLIGRAM, EVERYDAY
     Route: 048
     Dates: start: 20190723
  10. FULCALIQ [Concomitant]
     Active Substance: AMINO ACIDS\CARBOHYDRATES\ELECTROLYTES NOS\VITAMINS
     Indication: NUTRITIONAL SUPPLEMENTATION
     Dosage: 1103 MILLILITER, EVERYDAY
     Route: 041
     Dates: start: 20190727
  11. NAIXAN [NAPROXEN] [Concomitant]
     Active Substance: NAPROXEN
     Indication: PAIN
     Dosage: 2 GRAM, Q12H
     Route: 048
     Dates: start: 20190919
  12. ZYRTEC [Concomitant]
     Active Substance: CETIRIZINE HYDROCHLORIDE
     Indication: SEASONAL ALLERGY
     Dosage: 10 MILLIGRAM, EVERYDAY
     Route: 048
  13. THYRADIN S [Concomitant]
     Active Substance: LEVOTHYROXINE SODIUM
     Indication: HYPOTHYROIDISM
     Dosage: 150 MICROGRAM, EVERYDAY
     Route: 048
     Dates: start: 20181128
  14. NARUVEIN [Concomitant]
     Active Substance: HYDROMORPHONE HYDROCHLORIDE
     Indication: PAIN
     Dosage: 40 MILLIGRAM, EVERYDAY
     Route: 041
     Dates: start: 20190729
  15. MIYA-BM [Concomitant]
     Active Substance: CLOSTRIDIUM BUTYRICUM SPORES STRAIN M-55
     Indication: CONSTIPATION PROPHYLAXIS
     Dosage: 1 GRAM, Q12H
     Route: 048

REACTIONS (4)
  - Urinary tract infection [Recovered/Resolved]
  - Device related infection [Recovered/Resolved]
  - Peritonitis [Recovered/Resolved]
  - Acute kidney injury [Recovering/Resolving]

NARRATIVE: CASE EVENT DATE: 20190719
